FAERS Safety Report 16841343 (Version 2)
Quarter: 2019Q3

REPORT INFORMATION
  Report Type: Report from Study
  Country: IT (occurrence: IT)
  Receive Date: 20190923
  Receipt Date: 20190930
  Transmission Date: 20191005
  Serious: Yes (Death, Other)
  Sender: FDA-Public Use
  Company Number: PHHO2019IT004423

PATIENT
  Age: 4 Year
  Sex: Female
  Weight: 17.6 kg

DRUGS (4)
  1. MORPHINE [Concomitant]
     Active Substance: MORPHINE
     Indication: PAIN
     Dosage: 45 MG, UNK
     Route: 042
     Dates: start: 20190402
  2. VANCOMYCIN [Concomitant]
     Active Substance: VANCOMYCIN
     Indication: PRODUCT USED FOR UNKNOWN INDICATION
     Dosage: UNK
     Route: 065
     Dates: start: 20190409
  3. TISAGENLECLEUCEL. [Suspect]
     Active Substance: TISAGENLECLEUCEL
     Indication: ACUTE LYMPHOCYTIC LEUKAEMIA
     Dosage: 0.2,10^8
     Route: 042
     Dates: start: 20190412, end: 20190412
  4. KEPPRA [Concomitant]
     Active Substance: LEVETIRACETAM
     Indication: PROPHYLAXIS
     Dosage: 15 MG, BID
     Route: 042
     Dates: start: 20190403

REACTIONS (7)
  - Irritability [Not Recovered/Not Resolved]
  - Acute lymphocytic leukaemia [Fatal]
  - Pyrexia [Not Recovered/Not Resolved]
  - Tremor [Recovered/Resolved]
  - Cytokine release syndrome [Recovered/Resolved]
  - Tachycardia [Not Recovered/Not Resolved]
  - Malignant neoplasm progression [Fatal]

NARRATIVE: CASE EVENT DATE: 20190413
